FAERS Safety Report 8191970-7 (Version None)
Quarter: 2012Q1

REPORT INFORMATION
  Report Type: 
  Country: None (occurrence: None)
  Receive Date: 20120307
  Receipt Date: 20120301
  Transmission Date: 20120608
  Serious: Yes (Death)
  Sender: FDA-Public Use
  Company Number: PHHY2012JP017656

PATIENT
  Age: 79 Year
  Sex: Male

DRUGS (5)
  1. EXELON [Suspect]
     Indication: DEMENTIA ALZHEIMER'S TYPE
     Dosage: 4.5 MG/24 HOURS
     Route: 062
     Dates: start: 20120105, end: 20120202
  2. ANTI-PARKINSON AGENTS [Concomitant]
     Dosage: UNK UKN, UNK
     Dates: start: 20111222
  3. ANTI-PARKINSON AGENTS [Concomitant]
     Dosage: UNK UKN, UNK
     Dates: start: 20111208
  4. ANTI-PARKINSON AGENTS [Concomitant]
     Indication: PARKINSON'S DISEASE
     Dosage: UNK UKN, UNK
     Dates: start: 20111001
  5. ANTI-PARKINSON AGENTS [Concomitant]
     Dosage: UNK UKN, UNK
     Dates: start: 20111215

REACTIONS (1)
  - PNEUMONIA ASPIRATION [None]
